FAERS Safety Report 18248793 (Version 1)
Quarter: 2020Q3

REPORT INFORMATION
  Report Type: Report from Study
  Country: None (occurrence: US)
  Receive Date: 20200909
  Receipt Date: 20200909
  Transmission Date: 20201103
  Serious: Yes (Hospitalization, Other)
  Sender: FDA-Public Use
  Company Number: US-ABBVIE-19K-163-2924187-00

PATIENT
  Sex: Female

DRUGS (2)
  1. HUMIRA [Suspect]
     Active Substance: ADALIMUMAB
     Indication: RHEUMATOID ARTHRITIS
     Route: 058
     Dates: start: 20190822
  2. PREDNISONE. [Suspect]
     Active Substance: PREDNISONE
     Indication: PRODUCT USED FOR UNKNOWN INDICATION
     Route: 065

REACTIONS (33)
  - Muscle atrophy [Unknown]
  - Peripheral swelling [Not Recovered/Not Resolved]
  - Paraesthesia [Not Recovered/Not Resolved]
  - Pneumonia [Recovering/Resolving]
  - Transient ischaemic attack [Recovering/Resolving]
  - Hypoaesthesia [Not Recovered/Not Resolved]
  - Depression [Unknown]
  - Tooth fracture [Unknown]
  - Eye pain [Recovered/Resolved]
  - Injection site swelling [Not Recovered/Not Resolved]
  - Tooth infection [Unknown]
  - Photosensitivity reaction [Not Recovered/Not Resolved]
  - Asthma [Not Recovered/Not Resolved]
  - Systemic lupus erythematosus [Not Recovered/Not Resolved]
  - Loss of personal independence in daily activities [Not Recovered/Not Resolved]
  - Arthralgia [Unknown]
  - Injection site pruritus [Not Recovered/Not Resolved]
  - Infection [Not Recovered/Not Resolved]
  - Gait disturbance [Not Recovered/Not Resolved]
  - Swelling [Recovered/Resolved]
  - Anxiety [Unknown]
  - Paraesthesia [Recovered/Resolved]
  - Impaired self-care [Not Recovered/Not Resolved]
  - Injection site bruising [Recovering/Resolving]
  - Hypoaesthesia [Recovered/Resolved]
  - Swelling [Not Recovered/Not Resolved]
  - Injection site erythema [Recovering/Resolving]
  - Musculoskeletal discomfort [Unknown]
  - Pain [Not Recovered/Not Resolved]
  - Headache [Not Recovered/Not Resolved]
  - Rheumatoid arthritis [Unknown]
  - Somnolence [Not Recovered/Not Resolved]
  - Eye pain [Not Recovered/Not Resolved]

NARRATIVE: CASE EVENT DATE: 2019
